FAERS Safety Report 14670014 (Version 1)
Quarter: 2018Q1

REPORT INFORMATION
  Report Type: Spontaneous
  Country: US (occurrence: US)
  Receive Date: 20180322
  Receipt Date: 20180322
  Transmission Date: 20180509
  Serious: No
  Sender: FDA-Public Use
  Company Number: US-PFIZER INC-2018114359

PATIENT
  Age: 55 Year
  Sex: Female
  Weight: 86.64 kg

DRUGS (2)
  1. TIMOLOL MALEATE. [Concomitant]
     Active Substance: TIMOLOL MALEATE
     Dosage: 2 GTT, DAILY(0.5% OPHTHALMIC SOLUTION, 1 DROP EACH EYE EVERY MORNING)
     Route: 047
  2. DUAVEE [Suspect]
     Active Substance: BAZEDOXIFENE ACETATE\ESTROGENS, CONJUGATED
     Indication: HORMONE REPLACEMENT THERAPY
     Dosage: 0.45 MG, DAILY (1 TAB EVERY DAY IN THE MORNING, 0.45MG)
     Route: 048
     Dates: start: 201708, end: 20180217

REACTIONS (6)
  - Weight decreased [Unknown]
  - High density lipoprotein decreased [Unknown]
  - Condition aggravated [Unknown]
  - Spinal deformity [Unknown]
  - Blood cholesterol increased [Unknown]
  - Weight increased [Unknown]
